FAERS Safety Report 4941281-5 (Version None)
Quarter: 2006Q1

REPORT INFORMATION
  Report Type: 
  Country: None (occurrence: None)
  Receive Date: 20060313
  Receipt Date: 20050829
  Transmission Date: 20060701
  Serious: Yes (Disabling, Other)
  Sender: FDA-Public Use
  Company Number: US-MERCK-0508USA04630

PATIENT
  Age: 55 Year
  Sex: Male
  Weight: 93 kg

DRUGS (1)
  1. VIOXX [Suspect]
     Indication: ARTHRITIS
     Route: 048
     Dates: start: 20020101, end: 20021220

REACTIONS (3)
  - ARTHRALGIA [None]
  - CEREBROVASCULAR ACCIDENT [None]
  - ROTATOR CUFF SYNDROME [None]
